FAERS Safety Report 22284125 (Version 2)
Quarter: 2023Q2

REPORT INFORMATION
  Report Type: Report from Study
  Country: TH (occurrence: TH)
  Receive Date: 20230504
  Receipt Date: 20230519
  Transmission Date: 20230722
  Serious: Yes (Hospitalization, Other)
  Sender: FDA-Public Use
  Company Number: TH-BAYER-2023A057754

PATIENT
  Age: 86 Year
  Sex: Male

DRUGS (1)
  1. STIVARGA [Suspect]
     Active Substance: REGORAFENIB
     Indication: Colorectal cancer
     Dosage: 160 MG, QD
     Route: 048
     Dates: start: 20230421

REACTIONS (11)
  - Pyrexia [None]
  - Eye movement disorder [None]
  - Confusional state [None]
  - Asthenia [None]
  - Paralysis [None]
  - Tremor [None]
  - Muscle spasms [None]
  - Decreased appetite [None]
  - Diarrhoea [None]
  - Chest pain [Not Recovered/Not Resolved]
  - Dyspnoea [Not Recovered/Not Resolved]

NARRATIVE: CASE EVENT DATE: 20230421
